FAERS Safety Report 21982079 (Version 1)
Quarter: 2023Q1

REPORT INFORMATION
  Report Type: Spontaneous
  Country: US (occurrence: None)
  Receive Date: 20230213
  Receipt Date: 20230213
  Transmission Date: 20230418
  Serious: No
  Sender: FDA-Public Use
  Company Number: 2023A031843

PATIENT
  Sex: Female
  Weight: 113.4 kg

DRUGS (1)
  1. BYDUREON BCISE [Suspect]
     Active Substance: EXENATIDE
     Route: 058

REACTIONS (5)
  - Injury [Unknown]
  - Incorrect dose administered by device [Unknown]
  - Incorrect disposal of product [Unknown]
  - Product dose omission issue [Unknown]
  - Device leakage [Unknown]
